FAERS Safety Report 8846295 (Version 3)
Quarter: 2012Q4

REPORT INFORMATION
  Report Type: 
  Country: FI (occurrence: FI)
  Receive Date: 20121018
  Receipt Date: 20121115
  Transmission Date: 20130627
  Serious: Yes (Hospitalization, Other)
  Sender: FDA-Public Use
  Company Number: FI-AMGEN-FINSP2012065736

PATIENT
  Age: 78 Year
  Sex: Female

DRUGS (2)
  1. ENBREL [Suspect]
     Indication: RHEUMATOID ARTHRITIS
     Dosage: 50 mg, weekly
     Route: 058
     Dates: start: 20120412, end: 20120716
  2. ISONIAZID [Suspect]
     Indication: TUBERCULOSIS
     Dosage: 300 mg, 1x/day

REACTIONS (3)
  - Sarcoidosis [Recovered/Resolved]
  - Renal failure [Recovered/Resolved]
  - Hypercalcaemia [Recovered/Resolved]
